FAERS Safety Report 7903151-X (Version None)
Quarter: 2011Q4

REPORT INFORMATION
  Report Type: 
  Country: None (occurrence: None)
  Receive Date: 20111108
  Receipt Date: 20111108
  Transmission Date: 20120403
  Serious: Yes (Hospitalization)
  Sender: FDA-Public Use
  Company Number: None

PATIENT
  Age: 21 Year
  Sex: Male
  Weight: 82 kg

DRUGS (1)
  1. PURPOSE GENTLE CLEANSING WASH 6OZ [Suspect]
     Indication: THERAPEUTIC SKIN CARE TOPICAL
     Dosage: TOPICAL
     Route: 061
     Dates: end: 20111005

REACTIONS (5)
  - SKIN EXFOLIATION [None]
  - DRY SKIN [None]
  - ACNE [None]
  - SKIN FISSURES [None]
  - ERYTHEMA [None]
